FAERS Safety Report 7646009-6 (Version None)
Quarter: 2011Q3

REPORT INFORMATION
  Report Type: 
  Country: None (occurrence: None)
  Receive Date: 20110731
  Receipt Date: 20110718
  Transmission Date: 20111222
  Serious: Yes (Life-Threatening)
  Sender: FDA-Public Use
  Company Number: IT-MYLANLABS-2011S1014855

PATIENT
  Age: 32 Year
  Sex: Female

DRUGS (5)
  1. DEXAMETHASONE [Concomitant]
     Indication: PREMEDICATION
     Dates: start: 20110608, end: 20110608
  2. PACLITAXEL [Suspect]
     Indication: ADENOCARCINOMA
     Route: 042
     Dates: start: 20110519, end: 20110608
  3. LORATADINE [Concomitant]
     Indication: PREMEDICATION
     Dates: start: 20110608, end: 20110608
  4. CISPLATIN [Concomitant]
     Indication: ADENOCARCINOMA
     Route: 042
     Dates: start: 20110608, end: 20110608
  5. RANITIDINE [Concomitant]
     Indication: PREMEDICATION
     Dates: start: 20110608, end: 20110608

REACTIONS (2)
  - ERYTHEMA [None]
  - BACK PAIN [None]
